FAERS Safety Report 25818034 (Version 2)
Quarter: 2025Q3

REPORT INFORMATION
  Report Type: Spontaneous
  Country: US (occurrence: US)
  Receive Date: 20250918
  Receipt Date: 20250924
  Transmission Date: 20251021
  Serious: Yes (Other)
  Sender: RANBAXY
  Company Number: US-SUN PHARMACEUTICAL INDUSTRIES INC-2025R1-527437

PATIENT
  Age: 69 Year
  Sex: Female

DRUGS (4)
  1. DECITABINE [Suspect]
     Active Substance: DECITABINE
     Indication: Acute myeloid leukaemia
     Route: 065
  2. CEDAZURIDINE [Suspect]
     Active Substance: CEDAZURIDINE
     Indication: Acute myeloid leukaemia
     Route: 065
  3. ROMIPLOSTIM [Suspect]
     Active Substance: ROMIPLOSTIM
     Indication: Acute myeloid leukaemia
     Route: 065
  4. VENETOCLAX [Suspect]
     Active Substance: VENETOCLAX
     Indication: Acute myeloid leukaemia
     Route: 065

REACTIONS (1)
  - Disease progression [Unknown]
